FAERS Safety Report 26188117 (Version 1)
Quarter: 2025Q4

REPORT INFORMATION
  Report Type: Spontaneous
  Country: EU (occurrence: EU)
  Receive Date: 20251222
  Receipt Date: 20251222
  Transmission Date: 20260117
  Serious: Yes (Hospitalization, Other)
  Sender: PFIZER
  Company Number: EU-SANDOZ-SDZ2025DE092401

PATIENT
  Sex: Female

DRUGS (8)
  1. METHOTREXATE SODIUM [Suspect]
     Active Substance: METHOTREXATE SODIUM
     Dosage: 10 MG
     Route: 065
     Dates: start: 20120604, end: 20241001
  2. METHOTREXATE SODIUM [Suspect]
     Active Substance: METHOTREXATE SODIUM
     Dosage: 10 MG
     Route: 065
     Dates: start: 20250115
  3. IBUPROFEN [Suspect]
     Active Substance: IBUPROFEN
     Dosage: 600 MG
     Route: 065
     Dates: start: 20220328
  4. IBUPROFEN [Suspect]
     Active Substance: IBUPROFEN
     Dosage: 600 MG
     Route: 065
     Dates: start: 20250717
  5. ETORICOXIB [Suspect]
     Active Substance: ETORICOXIB
     Dosage: 60 MG
     Route: 065
     Dates: start: 20220228, end: 20220327
  6. COSENTYX [Suspect]
     Active Substance: SECUKINUMAB
     Dosage: 150 MG
     Route: 065
     Dates: start: 20200804
  7. COSENTYX [Suspect]
     Active Substance: SECUKINUMAB
     Dosage: 150 MG
     Route: 065
     Dates: start: 20220718
  8. COSENTYX [Suspect]
     Active Substance: SECUKINUMAB
     Dosage: 300 MG
     Route: 065
     Dates: start: 20220718

REACTIONS (2)
  - Syncope [Unknown]
  - Adjacent segment degeneration [Unknown]

NARRATIVE: CASE EVENT DATE: 20240918
